FAERS Safety Report 7804693-8 (Version None)
Quarter: 2011Q4

REPORT INFORMATION
  Report Type: 
  Country: None (occurrence: None)
  Receive Date: 20111010
  Receipt Date: 20110926
  Transmission Date: 20120403
  Serious: Yes (Hospitalization)
  Sender: FDA-Public Use
  Company Number: GB-JNJFOC-20110806741

PATIENT
  Sex: Female

DRUGS (3)
  1. CETIRIZINE HCL [Suspect]
     Route: 065
  2. FLIXONASE [Concomitant]
     Indication: SEASONAL ALLERGY
     Route: 045
  3. CETIRIZINE HCL [Suspect]
     Indication: SEASONAL ALLERGY
     Route: 065
     Dates: start: 20110523

REACTIONS (2)
  - ABORTION SPONTANEOUS [None]
  - MATERNAL EXPOSURE DURING PREGNANCY [None]
